FAERS Safety Report 19175598 (Version 2)
Quarter: 2021Q2

REPORT INFORMATION
  Report Type: Report from Study
  Country: MX (occurrence: MX)
  Receive Date: 20210423
  Receipt Date: 20210526
  Transmission Date: 20210717
  Serious: Yes (Other)
  Sender: FDA-Public Use
  Company Number: MX-009507513-2008MEX010172

PATIENT
  Age: 42 Year
  Sex: Female
  Weight: 102 kg

DRUGS (6)
  1. PEMBROLIZUMAB. [Suspect]
     Active Substance: PEMBROLIZUMAB
     Indication: RECTOSIGMOID CANCER METASTATIC
     Dosage: 200 MILLIGRAM, Q3W
     Route: 042
     Dates: start: 20201028
  2. PEMBROLIZUMAB. [Suspect]
     Active Substance: PEMBROLIZUMAB
     Indication: RECTOSIGMOID CANCER
     Dosage: 200 MILLIGRAM, Q3W
     Route: 042
     Dates: start: 20201125, end: 202102
  3. PEMBROLIZUMAB. [Suspect]
     Active Substance: PEMBROLIZUMAB
     Indication: MICROSATELLITE INSTABILITY CANCER
     Dosage: 200 MILLIGRAM, EVERY 21 DAYS
     Dates: start: 20200911
  4. LOSARTAN. [Concomitant]
     Active Substance: LOSARTAN
     Indication: HYPERTENSION
  5. PEMBROLIZUMAB. [Suspect]
     Active Substance: PEMBROLIZUMAB
     Indication: COLON CANCER METASTATIC
  6. METFORMIN [Concomitant]
     Active Substance: METFORMIN HYDROCHLORIDE
     Indication: BLOOD GLUCOSE INCREASED
     Dosage: 150 MILLIGRAM, Q12H

REACTIONS (38)
  - Tumour pseudoprogression [Unknown]
  - Jaundice [Recovered/Resolved]
  - Abdominal pain upper [Recovered/Resolved]
  - Tumour pseudoprogression [Unknown]
  - Lymphadenopathy [Recovered/Resolved]
  - COVID-19 [Recovered/Resolved]
  - Asthenia [Recovered/Resolved]
  - Rash [Recovered/Resolved]
  - Fatigue [Recovered/Resolved]
  - Blood cholesterol abnormal [Unknown]
  - Positron emission tomogram abnormal [Unknown]
  - Somnolence [Unknown]
  - Hepatic function abnormal [Recovered/Resolved]
  - Lung consolidation [Recovered/Resolved]
  - Lymphadenopathy mediastinal [Recovered/Resolved]
  - Blood triglycerides increased [Recovered/Resolved]
  - Gamma-glutamyltransferase increased [Unknown]
  - Inappropriate schedule of product administration [Unknown]
  - Malignant neoplasm progression [Recovered/Resolved]
  - Chest pain [Recovered/Resolved]
  - Therapy partial responder [Unknown]
  - Blood bilirubin increased [Recovered/Resolved]
  - Pruritus [Not Recovered/Not Resolved]
  - Blood glucose fluctuation [Unknown]
  - Abdominal lymphadenopathy [Recovering/Resolving]
  - Gilbert^s syndrome [Unknown]
  - Depressed mood [Recovered/Resolved]
  - Tumour marker increased [Recovered/Resolved]
  - Hepatic pain [Recovered/Resolved]
  - Atelectasis [Recovered/Resolved]
  - Blood triglycerides increased [Unknown]
  - Blood glucose abnormal [Unknown]
  - Pneumonia [Recovered/Resolved]
  - Malignant neoplasm progression [Recovered/Resolved]
  - Hepatitis [Not Recovered/Not Resolved]
  - Liver injury [Unknown]
  - Weight increased [Recovered/Resolved]
  - Nausea [Recovered/Resolved]

NARRATIVE: CASE EVENT DATE: 2020
